FAERS Safety Report 9932442 (Version 1)
Quarter: 2014Q1

REPORT INFORMATION
  Report Type: Spontaneous
  Country: US (occurrence: US)
  Receive Date: 20140228
  Receipt Date: 20140228
  Transmission Date: 20141002
  Serious: No
  Sender: FDA-Public Use
  Company Number: US-GLAXOSMITHKLINE-A1015133A

PATIENT
  Age: 15 Year
  Sex: Female

DRUGS (4)
  1. LAMICTAL [Suspect]
     Indication: BIPOLAR DISORDER
     Dosage: 150MG PER DAY
     Route: 048
     Dates: start: 201112
  2. PROZAC [Concomitant]
  3. MELATONIN [Concomitant]
  4. MEDROXYPROGESTERONE [Concomitant]

REACTIONS (1)
  - Rash [Recovered/Resolved]
